FAERS Safety Report 8442680-X (Version None)
Quarter: 2012Q2

REPORT INFORMATION
  Report Type: 
  Country: None (occurrence: None)
  Receive Date: 20120615
  Receipt Date: 20111202
  Transmission Date: 20120825
  Serious: No
  Sender: FDA-Public Use
  Company Number: US-NOVEN-11US003728

PATIENT
  Sex: Male
  Weight: 40.816 kg

DRUGS (3)
  1. NASONEX [Concomitant]
     Indication: ASTHMA
     Dosage: QD
     Route: 045
  2. DAYTRANA [Suspect]
     Indication: ATTENTION DEFICIT/HYPERACTIVITY DISORDER
     Dosage: 20MG X2, QD IN AM
     Route: 062
     Dates: start: 20070101, end: 20111111
  3. CLARINEX [Concomitant]
     Indication: HYPERSENSITIVITY
     Dosage: QD

REACTIONS (5)
  - PRODUCT QUALITY ISSUE [None]
  - WRONG TECHNIQUE IN DRUG USAGE PROCESS [None]
  - WEIGHT GAIN POOR [None]
  - APPLICATION SITE ERYTHEMA [None]
  - DECREASED APPETITE [None]
